FAERS Safety Report 6303087-4 (Version None)
Quarter: 2009Q3

REPORT INFORMATION
  Report Type: 
  Country: None (occurrence: None)
  Receive Date: 20090810
  Receipt Date: 20090729
  Transmission Date: 20100115
  Serious: Yes (Other)
  Sender: FDA-Public Use
  Company Number: SG-ROCHE-647269

PATIENT
  Age: 13 Year
  Sex: Male
  Weight: 40 kg

DRUGS (5)
  1. TAMIFLU [Suspect]
     Route: 048
     Dates: start: 20090723, end: 20090727
  2. DEQUADIN [Concomitant]
     Route: 048
  3. DIPHENHYDRAMINE HCL [Concomitant]
     Dosage: DRUG REPORTED AS : DIPHENHYDRAMINE EXPECTORANT.
     Route: 048
  4. LORATADINE [Concomitant]
     Route: 048
  5. ACETAMINOPHEN [Concomitant]
     Route: 048

REACTIONS (2)
  - NIGHTMARE [None]
  - SUICIDE ATTEMPT [None]
